FAERS Safety Report 13258829 (Version 1)
Quarter: 2017Q1

REPORT INFORMATION
  Report Type: Spontaneous
  Country: GR (occurrence: GR)
  Receive Date: 20170222
  Receipt Date: 20170222
  Transmission Date: 20170428
  Serious: Yes (Death, Hospitalization, Other)
  Sender: FDA-Public Use
  Company Number: GR-JNJFOC-20170215463

PATIENT
  Age: 82 Year
  Sex: Female

DRUGS (1)
  1. DARZALEX [Suspect]
     Active Substance: DARATUMUMAB
     Indication: PLASMA CELL MYELOMA

REACTIONS (7)
  - Platelet count decreased [Unknown]
  - Death [Fatal]
  - Haemoglobin decreased [Unknown]
  - Product use issue [Unknown]
  - Chest pain [Unknown]
  - Electrocardiogram abnormal [Unknown]
  - Off label use [Unknown]
